FAERS Safety Report 21341226 (Version 2)
Quarter: 2022Q4

REPORT INFORMATION
  Report Type: Spontaneous
  Country: CN (occurrence: CN)
  Receive Date: 20220916
  Receipt Date: 20221111
  Transmission Date: 20230113
  Serious: Yes (Death, Other)
  Sender: FDA-Public Use
  Company Number: CN-ALKEM LABORATORIES LIMITED-CN-ALKEM-2022-09695

PATIENT
  Age: 56 Year
  Sex: Male

DRUGS (1)
  1. COLCHICINE [Suspect]
     Active Substance: COLCHICINE
     Dosage: 12 MILLIGRAM (0.17MG/KG)
     Route: 065

REACTIONS (12)
  - Acute kidney injury [Fatal]
  - Acute respiratory failure [Fatal]
  - Metabolic acidosis [Fatal]
  - Coagulopathy [Fatal]
  - Hepatic function abnormal [Fatal]
  - Liver injury [Fatal]
  - Myocardial injury [Fatal]
  - Overdose [Unknown]
  - Multiple organ dysfunction syndrome [Fatal]
  - Rhabdomyolysis [Fatal]
  - Respiratory alkalosis [Fatal]
  - Systemic inflammatory response syndrome [Fatal]
